FAERS Safety Report 12934434 (Version 2)
Quarter: 2016Q4

REPORT INFORMATION
  Report Type: Spontaneous
  Country: US (occurrence: US)
  Receive Date: 20161111
  Receipt Date: 20161123
  Transmission Date: 20170207
  Serious: No
  Sender: FDA-Public Use
  Company Number: PHEH2016US029188

PATIENT
  Age: 66 Year
  Sex: Female

DRUGS (1)
  1. SANDOSTATIN LAR DEPOT [Suspect]
     Active Substance: OCTREOTIDE ACETATE
     Indication: PRODUCT USED FOR UNKNOWN INDICATION
     Dosage: 20 MG, UNK
     Route: 030
     Dates: start: 20161007

REACTIONS (5)
  - Arthralgia [Unknown]
  - Injection site pain [Unknown]
  - Insomnia [Unknown]
  - Sciatic nerve injury [Unknown]
  - Sciatica [Unknown]

NARRATIVE: CASE EVENT DATE: 20161104
